FAERS Safety Report 14364304 (Version 2)
Quarter: 2018Q3

REPORT INFORMATION
  Report Type: Spontaneous
  Country: NL (occurrence: NL)
  Receive Date: 20180108
  Receipt Date: 20180711
  Transmission Date: 20181010
  Serious: Yes (Hospitalization)
  Sender: FDA-Public Use
  Company Number: NL-MYLANLABS-2018M1000855

PATIENT
  Age: 42 Year
  Sex: Male
  Weight: 70 kg

DRUGS (1)
  1. LEPONEX 100 MG [Suspect]
     Active Substance: CLOZAPINE
     Indication: PSYCHOTIC DISORDER
     Dosage: 1 DF, QD
     Dates: start: 20171116, end: 20171212

REACTIONS (1)
  - Eosinophilic colitis [Recovered/Resolved]

NARRATIVE: CASE EVENT DATE: 20171125
